FAERS Safety Report 8785472 (Version 1)
Quarter: 2012Q4

REPORT INFORMATION
  Report Type: Report from Study
  Country: US (occurrence: US)
  Receive Date: 20120914
  Receipt Date: 20120914
  Transmission Date: 20130627
  Serious: Yes (Other)
  Sender: FDA-Public Use
  Company Number: US-ABBOTT-12P-163-0977262-00

PATIENT
  Sex: Female

DRUGS (9)
  1. HUMIRA [Suspect]
     Indication: RHEUMATOID ARTHRITIS
     Dates: start: 201206
  2. NORVASC [Concomitant]
     Indication: HYPERTENSION
  3. FOLIC ACID [Concomitant]
     Indication: VITAMIN SUPPLEMENTATION
  4. ATENOLOL [Concomitant]
     Indication: HYPERTENSION
  5. CALCIUM [Concomitant]
     Indication: MINERAL SUPPLEMENTATION
  6. VITAMIN D [Concomitant]
     Indication: VITAMIN SUPPLEMENTATION
  7. METHOTREXATE [Concomitant]
     Indication: RHEUMATOID ARTHRITIS
  8. BENAZEPRIL [Concomitant]
     Indication: HYPERTENSION
  9. ALENDRONATE [Concomitant]
     Indication: BONE DISORDER

REACTIONS (4)
  - Dental caries [Recovered/Resolved]
  - Injection site pain [Not Recovered/Not Resolved]
  - Product quality issue [Not Recovered/Not Resolved]
  - Poor quality drug administered [Not Recovered/Not Resolved]
